FAERS Safety Report 5745523-8 (Version None)
Quarter: 2008Q2

REPORT INFORMATION
  Report Type: 
  Country: None (occurrence: None)
  Receive Date: 20080521
  Receipt Date: 20080513
  Transmission Date: 20081010
  Serious: Yes (Other)
  Sender: FDA-Public Use
  Company Number: MA-ASTRAZENECA-2008CG00715

PATIENT
  Sex: Female

DRUGS (3)
  1. BUPIVACAINE [Suspect]
     Indication: LOCAL ANAESTHESIA
     Route: 037
  2. LIDOCAINE [Suspect]
     Indication: LOCAL ANAESTHESIA
     Route: 037
  3. SULFONYLUREA [Concomitant]
     Indication: DIABETES MELLITUS

REACTIONS (1)
  - NEUROPATHY PERIPHERAL [None]
